FAERS Safety Report 13068775 (Version 3)
Quarter: 2017Q1

REPORT INFORMATION
  Report Type: Report from Study
  Country: JP (occurrence: JP)
  Receive Date: 20161228
  Receipt Date: 20170331
  Transmission Date: 20170428
  Serious: Yes (Other)
  Sender: FDA-Public Use
  Company Number: JP-ACTELION-A-CH2016-147522

PATIENT
  Age: 14 Year
  Sex: Male

DRUGS (14)
  1. ROZEREM [Concomitant]
     Active Substance: RAMELTEON
  2. BIOFERMIN R [Concomitant]
     Active Substance: BACILLUS SUBTILIS\LACTOBACILLUS ACIDOPHILUS\STREPTOCOCCUS FAECAIS
  3. OPSUMIT [Suspect]
     Active Substance: MACITENTAN
     Dosage: 3.2 MG, OD
     Route: 048
     Dates: start: 20160328
  4. DAIPHEN [Concomitant]
     Active Substance: SULFAMETHOXAZOLE\TRIMETHOPRIM
  5. PRANLUKAST [Concomitant]
     Active Substance: PRANLUKAST
  6. DEPAKENE [Concomitant]
     Active Substance: VALPROIC ACID
  7. OPSUMIT [Suspect]
     Active Substance: MACITENTAN
     Indication: PULMONARY ARTERIAL HYPERTENSION
     Dosage: 2.5 MG, OD
     Route: 048
     Dates: start: 20160325, end: 20160327
  8. CALFINA [Concomitant]
     Active Substance: ALFACALCIDOL
  9. ADCIRCA [Concomitant]
     Active Substance: TADALAFIL
  10. OXYGEN. [Concomitant]
     Active Substance: OXYGEN
  11. WIDECILLIN [Concomitant]
     Active Substance: AMOXICILLIN
  12. THEO-DUR [Concomitant]
     Active Substance: THEOPHYLLINE ANHYDROUS
  13. LORAZEPAM. [Concomitant]
     Active Substance: LORAZEPAM
  14. XYZAL [Concomitant]
     Active Substance: LEVOCETIRIZINE DIHYDROCHLORIDE

REACTIONS (6)
  - Respiratory disorder [Recovering/Resolving]
  - Tachypnoea [Recovering/Resolving]
  - Dyspnoea [Recovering/Resolving]
  - Weight increased [Recovering/Resolving]
  - Pulmonary oedema [Recovering/Resolving]
  - Oxygen saturation decreased [Recovering/Resolving]

NARRATIVE: CASE EVENT DATE: 20160326
